FAERS Safety Report 10277129 (Version 2)
Quarter: 2014Q3

REPORT INFORMATION
  Report Type: Report from Study
  Country: US (occurrence: US)
  Receive Date: 20140703
  Receipt Date: 20140703
  Transmission Date: 20150326
  Serious: Yes (Other)
  Sender: FDA-Public Use
  Company Number: US-BAYER-2014-053504

PATIENT
  Sex: Female

DRUGS (1)
  1. EXTAVIA [Suspect]
     Active Substance: INTERFERON BETA-1B
     Indication: MULTIPLE SCLEROSIS
     Dosage: 0.25 MG, QOD
     Route: 058
     Dates: start: 20110325

REACTIONS (6)
  - Atrial fibrillation [Recovering/Resolving]
  - Cardiac disorder [Recovering/Resolving]
  - Muscular weakness [Recovering/Resolving]
  - Blood pressure increased [Recovering/Resolving]
  - Injection site pain [None]
  - Heart rate increased [Recovering/Resolving]
